FAERS Safety Report 12586991 (Version 1)
Quarter: 2016Q3

REPORT INFORMATION
  Report Type: Spontaneous
  Country: JP (occurrence: JP)
  Receive Date: 20160725
  Receipt Date: 20160725
  Transmission Date: 20161109
  Serious: Yes (Other)
  Sender: FDA-Public Use
  Company Number: JP-BAYER-2016-137186

PATIENT
  Age: 61 Year
  Sex: Female

DRUGS (1)
  1. REGORAFENIB [Suspect]
     Active Substance: REGORAFENIB
     Indication: RECTAL CANCER
     Dosage: 160 MG/DAY

REACTIONS (5)
  - Pulmonary cavitation [None]
  - Tumour marker increased [None]
  - Rectal cancer [None]
  - Metastases to bone [None]
  - Lung consolidation [None]

NARRATIVE: CASE EVENT DATE: 201410
